FAERS Safety Report 6089078-X (Version None)
Quarter: 2009Q1

REPORT INFORMATION
  Report Type: 
  Country: None (occurrence: None)
  Receive Date: 20090219
  Receipt Date: 20090219
  Transmission Date: 20090719
  Serious: Yes (Other)
  Sender: FDA-Public Use
  Company Number: None

PATIENT
  Age: 57 Year
  Sex: Male
  Weight: 95.2554 kg

DRUGS (2)
  1. BUPIVACAINE HYDROCHLORIDE AND EPINEPHRINE [Suspect]
     Indication: NERVE BLOCK
     Dosage: 30 ML X ONE 01/29/09 @ 0945
     Dates: start: 20090129
  2. MARCAINE HYDROCHLORIDE W/ EPINEPHRINE [Concomitant]

REACTIONS (1)
  - DRUG INEFFECTIVE [None]
